FAERS Safety Report 21652966 (Version 2)
Quarter: 2023Q1

REPORT INFORMATION
  Report Type: Report from Study
  Country: KR (occurrence: KR)
  Receive Date: 20221128
  Receipt Date: 20230112
  Transmission Date: 20230418
  Serious: Yes (Death, Hospitalization)
  Sender: FDA-Public Use
  Company Number: KR-JNJFOC-20210353988

PATIENT
  Age: 83 Year
  Sex: Female
  Weight: 42 kg

DRUGS (2)
  1. AMIVANTAMAB [Suspect]
     Active Substance: AMIVANTAMAB
     Indication: Non-small cell lung cancer
     Dosage: LAST DOSING WAS 08-MAR-2021 FOR C4D1
     Dates: start: 20201214
  2. MORPHINE [Concomitant]
     Active Substance: MORPHINE
     Indication: Sedation
     Route: 065

REACTIONS (2)
  - Pneumonia [Fatal]
  - Pulmonary embolism [Not Recovered/Not Resolved]

NARRATIVE: CASE EVENT DATE: 20210319
